FAERS Safety Report 14278570 (Version 1)
Quarter: 2017Q4

REPORT INFORMATION
  Report Type: Spontaneous
  Country: CH (occurrence: CH)
  Receive Date: 20171211
  Receipt Date: 20171211
  Transmission Date: 20180321
  Serious: Yes (Hospitalization)
  Sender: FDA-Public Use
  Company Number: CH-OTSUKA-DJ20060813

PATIENT

DRUGS (12)
  1. OLANZAPINE. [Concomitant]
     Active Substance: OLANZAPINE
     Route: 065
  2. SALMETEROL XINAFOATE+FLUTICASONE PROP [Concomitant]
  3. CAPTOPRIL. [Concomitant]
     Active Substance: CAPTOPRIL
  4. VALPROIC ACID. [Concomitant]
     Active Substance: VALPROIC ACID
     Route: 065
  5. OLANZAPINE. [Concomitant]
     Active Substance: OLANZAPINE
  6. CAPTOPRIL. [Concomitant]
     Active Substance: CAPTOPRIL
     Route: 065
  7. ABILIFY [Suspect]
     Active Substance: ARIPIPRAZOLE
     Route: 048
     Dates: start: 20041203, end: 20041207
  8. FUROSEMIDE. [Concomitant]
     Active Substance: FUROSEMIDE
  9. LORAZEPAM. [Concomitant]
     Active Substance: LORAZEPAM
     Route: 065
  10. FUROSEMIDE. [Concomitant]
     Active Substance: FUROSEMIDE
     Route: 065
  11. SALMETEROL XINAFOATE+FLUTICASONE PROPIONATE [Concomitant]
     Route: 065
  12. LORAZEPAM. [Concomitant]
     Active Substance: LORAZEPAM

REACTIONS (5)
  - Fatigue [Recovered/Resolved]
  - Dyspepsia [Recovered/Resolved]
  - Nausea [Recovered/Resolved]
  - Dizziness [Recovered/Resolved]
  - Vomiting [Recovered/Resolved]

NARRATIVE: CASE EVENT DATE: 20041203
